FAERS Safety Report 7730563-X (Version None)
Quarter: 2011Q3

REPORT INFORMATION
  Report Type: 
  Country: None (occurrence: None)
  Receive Date: 20110906
  Receipt Date: 20110829
  Transmission Date: 20111222
  Serious: Yes (Death, Hospitalization)
  Sender: FDA-Public Use
  Company Number: IN-GENZYME-POMP-1001760

PATIENT
  Sex: Male
  Weight: 4 kg

DRUGS (1)
  1. MYOZYME [Suspect]
     Indication: GLYCOGEN STORAGE DISEASE TYPE II
     Dosage: UNK
     Route: 042
     Dates: start: 20110101

REACTIONS (2)
  - DEATH [None]
  - LOWER RESPIRATORY TRACT INFECTION [None]
